FAERS Safety Report 7526083-8 (Version None)
Quarter: 2011Q2

REPORT INFORMATION
  Report Type: 
  Country: None (occurrence: None)
  Receive Date: 20110527
  Receipt Date: 20110521
  Transmission Date: 20111010
  Serious: Yes (Hospitalization, Other)
  Sender: FDA-Public Use
  Company Number: TPA2011A02302

PATIENT
  Age: 58 Year
  Sex: Female

DRUGS (8)
  1. DEXILANT [Suspect]
     Indication: GASTRITIS EROSIVE
     Dosage: SEE IMAGE
     Route: 048
     Dates: start: 20100101
  2. DEXILANT [Suspect]
     Indication: EROSIVE OESOPHAGITIS
     Dosage: SEE IMAGE
     Route: 048
     Dates: start: 20100101
  3. DEXILANT [Suspect]
     Indication: GASTRITIS EROSIVE
     Dosage: SEE IMAGE
     Route: 048
     Dates: end: 20110510
  4. DEXILANT [Suspect]
     Indication: EROSIVE OESOPHAGITIS
     Dosage: SEE IMAGE
     Route: 048
     Dates: end: 20110510
  5. DEXILANT [Suspect]
     Indication: GASTRITIS EROSIVE
     Dosage: SEE IMAGE
     Route: 048
     Dates: start: 20110501
  6. DEXILANT [Suspect]
     Indication: EROSIVE OESOPHAGITIS
     Dosage: SEE IMAGE
     Route: 048
     Dates: start: 20110501
  7. DEXILANT [Suspect]
     Indication: GASTRITIS EROSIVE
     Dosage: SEE IMAGE
     Route: 048
  8. DEXILANT [Suspect]
     Indication: EROSIVE OESOPHAGITIS
     Dosage: SEE IMAGE
     Route: 048

REACTIONS (12)
  - OROPHARYNGEAL PAIN [None]
  - MALAISE [None]
  - PULMONARY EMBOLISM [None]
  - RASH PRURITIC [None]
  - HYPERSENSITIVITY [None]
  - EATING DISORDER [None]
  - DEEP VEIN THROMBOSIS [None]
  - ABDOMINAL PAIN UPPER [None]
  - ANAEMIA [None]
  - DRY MOUTH [None]
  - COUGH [None]
  - THROAT IRRITATION [None]
